FAERS Safety Report 6097460-X (Version None)
Quarter: 2009Q1

REPORT INFORMATION
  Report Type: 
  Country: None (occurrence: None)
  Receive Date: 20090227
  Receipt Date: 20080626
  Transmission Date: 20090719
  Serious: No
  Sender: FDA-Public Use
  Company Number: A0734953A

PATIENT
  Age: 48 Year
  Sex: Female

DRUGS (4)
  1. IMITREX [Suspect]
     Indication: MIGRAINE
     Dosage: 6MG AS REQUIRED
     Route: 058
  2. VICODIN [Concomitant]
  3. CELEBREX [Concomitant]
  4. PRILOSEC [Concomitant]

REACTIONS (5)
  - ARTHRALGIA [None]
  - DISCOMFORT [None]
  - HEADACHE [None]
  - MYALGIA [None]
  - VOMITING [None]
